FAERS Safety Report 23160587 (Version 3)
Quarter: 2023Q4

REPORT INFORMATION
  Report Type: Report from Study
  Country: US (occurrence: US)
  Receive Date: 20231108
  Receipt Date: 20231220
  Transmission Date: 20240110
  Serious: Yes (Other)
  Sender: FDA-Public Use
  Company Number: US-ALXN-A202301840AA

PATIENT
  Age: 40 Year
  Sex: Female

DRUGS (2)
  1. STRENSIQ [Suspect]
     Active Substance: ASFOTASE ALFA
     Indication: Hypophosphatasia
     Dosage: 120 MG, TIW
     Route: 058
     Dates: start: 20230212
  2. STRENSIQ [Suspect]
     Active Substance: ASFOTASE ALFA
     Dosage: 80 MG, UNK
     Route: 065

REACTIONS (30)
  - Blindness [Unknown]
  - Narcolepsy [Unknown]
  - Haemorrhagic ovarian cyst [Unknown]
  - Polycystic ovarian syndrome [Unknown]
  - Ovarian cyst ruptured [Unknown]
  - Pallor [Unknown]
  - Dizziness [Unknown]
  - Fatigue [Unknown]
  - Migraine [Not Recovered/Not Resolved]
  - Hypoacusis [Unknown]
  - Upper respiratory tract infection [Not Recovered/Not Resolved]
  - Pain [Unknown]
  - Arthralgia [Unknown]
  - Cough [Not Recovered/Not Resolved]
  - Road traffic accident [Unknown]
  - Ligament sprain [Unknown]
  - Head injury [Unknown]
  - Hot flush [Unknown]
  - Headache [Not Recovered/Not Resolved]
  - Blood sodium decreased [Unknown]
  - Blood potassium decreased [Unknown]
  - Lymphadenopathy [Unknown]
  - Hypersomnia [Unknown]
  - Night sweats [Unknown]
  - Insomnia [Unknown]
  - Lipoatrophy [Unknown]
  - Injection site pain [Unknown]
  - Injection site bruising [Unknown]
  - Vitamin B6 decreased [Unknown]
  - Sinusitis [Unknown]

NARRATIVE: CASE EVENT DATE: 20230212
